FAERS Safety Report 18926715 (Version 1)
Quarter: 2021Q1

REPORT INFORMATION
  Report Type: Spontaneous
  Country: US (occurrence: US)
  Receive Date: 20210222
  Receipt Date: 20210222
  Transmission Date: 20210420
  Serious: Yes (Hospitalization)
  Sender: FDA-Public Use
  Company Number: None

PATIENT
  Sex: Female

DRUGS (26)
  1. BUPREN/ALOX [Concomitant]
  2. ESCITALOPRAM [Concomitant]
     Active Substance: ESCITALOPRAM OXALATE
  3. FLUCONAZOLE. [Concomitant]
     Active Substance: FLUCONAZOLE
  4. HYDROCORTISON CRE [Concomitant]
  5. ZENPEP [Concomitant]
     Active Substance: PANCRELIPASE AMYLASE\PANCRELIPASE LIPASE\PANCRELIPASE PROTEASE
  6. AMPHET.DEXTR [Concomitant]
  7. AZITHROMYCIN ANHYDROUS. [Concomitant]
     Active Substance: AZITHROMYCIN ANHYDROUS
  8. HYDROMORPHON [Concomitant]
     Active Substance: HYDROMORPHONE
  9. VITAMIN D [Concomitant]
     Active Substance: VITAMIN D NOS
  10. SPRAVATO [Suspect]
     Active Substance: ESKETAMINE
     Indication: MAJOR DEPRESSION
     Dosage: ?          OTHER ROUTE:OTHER?
     Dates: start: 20200514
  11. A?HYDROCORT [Concomitant]
     Active Substance: HYDROCORTISONE SODIUM SUCCINATE
  12. HYDROCP/APAP [Concomitant]
  13. LO LOESTRIN FE [Concomitant]
     Active Substance: ETHINYL ESTRADIOL\NORETHINDRONE ACETATE
  14. NEO/POLY/HC [Concomitant]
     Active Substance: HYDROCORTISONE\NEOMYCIN\POLYMYXIN B SULFATE
  15. VANCOMYCIN [Concomitant]
     Active Substance: VANCOMYCIN
  16. DOXYCYC MONO [Concomitant]
     Active Substance: DOXYCYCLINE
  17. METROINDAZOL [Concomitant]
  18. FAMOTIDINE. [Concomitant]
     Active Substance: FAMOTIDINE
  19. METHOCARBAM [Concomitant]
     Active Substance: METHOCARBAMOL
  20. PREDNISONE. [Concomitant]
     Active Substance: PREDNISONE
  21. ROPINIROLE. [Concomitant]
     Active Substance: ROPINIROLE
  22. DOX [Concomitant]
  23. OXYCODONE AND ACETAMINOPHEN [Concomitant]
     Active Substance: ACETAMINOPHEN\OXYCODONE HYDROCHLORIDE
  24. CELEOXIB [Concomitant]
  25. METHYLPRED [Concomitant]
     Active Substance: METHYLPREDNISOLONE
  26. MOTEGRITY [Concomitant]
     Active Substance: PRUCALOPRIDE SUCCINATE

REACTIONS (1)
  - Infection [None]
